FAERS Safety Report 24829618 (Version 1)
Quarter: 2025Q1

REPORT INFORMATION
  Report Type: Spontaneous
  Country: TR (occurrence: TR)
  Receive Date: 20250110
  Receipt Date: 20250110
  Transmission Date: 20250409
  Serious: Yes (Hospitalization, Other)
  Sender: JOHNSON AND JOHNSON
  Company Number: TR-JNJFOC-20250100950

PATIENT
  Age: 68 Year
  Sex: Female

DRUGS (1)
  1. DARZALEX [Suspect]
     Active Substance: DARATUMUMAB
     Indication: Plasma cell myeloma refractory
     Dosage: FOR 8 WEEKS
     Route: 065

REACTIONS (3)
  - Encephalitis [Recovered/Resolved]
  - Confusional state [Unknown]
  - Pyrexia [Unknown]
